FAERS Safety Report 21928489 (Version 1)
Quarter: 2023Q1

REPORT INFORMATION
  Report Type: Spontaneous
  Country: US (occurrence: US)
  Receive Date: 20230130
  Receipt Date: 20230130
  Transmission Date: 20230417
  Serious: No
  Sender: FDA-Public Use
  Company Number: US-drreddys-SPO/USA/22/0158670

PATIENT
  Age: 75 Year
  Sex: Male

DRUGS (4)
  1. LENALIDOMIDE [Suspect]
     Active Substance: LENALIDOMIDE
     Indication: Plasma cell myeloma in remission
     Dosage: WITH WATER AT THE SAME TIME DAILY ON DAYS 1-14 OF EACH 28-DAY CYCLE AS DIRECTED
     Route: 048
     Dates: start: 20221026
  2. ACYCLOVIR CAP 200MG [Concomitant]
     Indication: Product used for unknown indication
  3. CALCIUM TAB 600MG [Concomitant]
     Indication: Product used for unknown indication
  4. VITAMIN D LIQ 10MCG/ML [Concomitant]
     Indication: Product used for unknown indication
     Dosage: LIQ 10MCG/ML

REACTIONS (2)
  - Product dose omission issue [Unknown]
  - Product administration interrupted [Unknown]

NARRATIVE: CASE EVENT DATE: 20221114
